FAERS Safety Report 5861221-4 (Version None)
Quarter: 2008Q3

REPORT INFORMATION
  Report Type: 
  Country: None (occurrence: None)
  Receive Date: 20080827
  Receipt Date: 20080603
  Transmission Date: 20090109
  Serious: No
  Sender: FDA-Public Use
  Company Number: US-ABBOTT-08P-163-0443997-00

PATIENT
  Sex: Male
  Weight: 104 kg

DRUGS (6)
  1. NIASPAN [Suspect]
     Indication: HYPERLIPIDAEMIA
     Route: 048
     Dates: start: 20080101
  2. SIMVASTATIN [Concomitant]
     Indication: DRUG USE FOR UNKNOWN INDICATION
     Route: 048
  3. ALLEGRA-D [Concomitant]
     Indication: DRUG USE FOR UNKNOWN INDICATION
     Route: 048
  4. ACETYLSALICYLIC ACID SRT [Concomitant]
     Indication: DRUG USE FOR UNKNOWN INDICATION
     Route: 048
     Dates: start: 20080101
  5. ACETYLSALICYLIC ACID SRT [Concomitant]
  6. MULTI-VITAMIN [Concomitant]
     Indication: DRUG USE FOR UNKNOWN INDICATION
     Route: 048

REACTIONS (6)
  - DIZZINESS [None]
  - FLUSHING [None]
  - GENERALISED ERYTHEMA [None]
  - HOT FLUSH [None]
  - PRESYNCOPE [None]
  - PRURITUS GENERALISED [None]
